FAERS Safety Report 12711785 (Version 1)
Quarter: 2016Q3

REPORT INFORMATION
  Report Type: Spontaneous
  Country: US (occurrence: US)
  Receive Date: 20160902
  Receipt Date: 20160902
  Transmission Date: 20161109
  Serious: Yes (Other)
  Sender: FDA-Public Use
  Company Number: US-AUROBINDO-AUR-APL-2016-10501

PATIENT
  Sex: Female

DRUGS (3)
  1. APIUM GRAVEOLENS [Suspect]
     Active Substance: CELERY SEED
     Indication: MENOPAUSAL DISORDER
     Dosage: UNK
     Route: 065
  2. HYPERICUM                          /01166801/ [Concomitant]
     Active Substance: HYPERICUM PERFORATUM
     Indication: DEPRESSION
     Dosage: UNK
     Route: 065
  3. VENLAFAXINE 75MG [Suspect]
     Active Substance: VENLAFAXINE HYDROCHLORIDE
     Indication: DEPRESSION
     Dosage: 75 MG, DAILY
     Route: 065

REACTIONS (10)
  - Mood altered [Recovered/Resolved]
  - Drug level increased [Recovered/Resolved]
  - Mania [Recovered/Resolved]
  - Emotional distress [Recovered/Resolved]
  - Pressure of speech [Recovered/Resolved]
  - Bipolar disorder [Recovered/Resolved]
  - Abnormal behaviour [Recovered/Resolved]
  - Thinking abnormal [Recovered/Resolved]
  - Hallucination, visual [Recovered/Resolved]
  - Hallucination [Recovered/Resolved]
